FAERS Safety Report 8288590-2 (Version None)
Quarter: 2012Q2

REPORT INFORMATION
  Report Type: 
  Country: None (occurrence: None)
  Receive Date: 20120416
  Receipt Date: 20120410
  Transmission Date: 20120825
  Serious: Yes (Hospitalization)
  Sender: FDA-Public Use
  Company Number: US-MERCK-1204USA01629

PATIENT
  Age: 66 Year
  Sex: Female

DRUGS (5)
  1. ZANAFLEX [Concomitant]
     Route: 065
  2. PROZAC [Concomitant]
     Route: 065
  3. VYTORIN [Suspect]
     Indication: BLOOD CHOLESTEROL INCREASED
     Route: 048
     Dates: end: 20110601
  4. KLONOPIN [Concomitant]
     Route: 065
  5. OXYCODONE [Concomitant]
     Route: 065

REACTIONS (3)
  - FALL [None]
  - MUSCULAR WEAKNESS [None]
  - FEMUR FRACTURE [None]
